FAERS Safety Report 11432738 (Version 1)
Quarter: 2015Q3

REPORT INFORMATION
  Report Type: Spontaneous
  Country: US (occurrence: US)
  Receive Date: 20150828
  Receipt Date: 20150828
  Transmission Date: 20151125
  Serious: No
  Sender: FDA-Public Use
  Company Number: PHEH2015US005123

PATIENT
  Age: 63 Year
  Sex: Female
  Weight: 85.27 kg

DRUGS (1)
  1. TASIGNA [Suspect]
     Active Substance: NILOTINIB
     Indication: CHRONIC MYELOID LEUKAEMIA
     Dosage: 150 MG, BID
     Route: 048
     Dates: start: 20130708

REACTIONS (10)
  - Flushing [Not Recovered/Not Resolved]
  - Palpitations [Not Recovered/Not Resolved]
  - Pain [Unknown]
  - Bite [Unknown]
  - Headache [Not Recovered/Not Resolved]
  - Heart rate increased [Recovered/Resolved]
  - Swelling [Unknown]
  - Electrocardiogram abnormal [Unknown]
  - Inflammation [Unknown]
  - Erythema [Not Recovered/Not Resolved]

NARRATIVE: CASE EVENT DATE: 201411
